FAERS Safety Report 22880556 (Version 4)
Quarter: 2023Q4

REPORT INFORMATION
  Report Type: Report from Study
  Country: AU (occurrence: AU)
  Receive Date: 20230829
  Receipt Date: 20231005
  Transmission Date: 20240109
  Serious: Yes (Hospitalization, Disabling)
  Sender: FDA-Public Use
  Company Number: AU-BIOMARIN PHARMACEUTICAL INC.-AU-2023-152228

PATIENT

DRUGS (1)
  1. INVESTIGATIONAL PRODUCT [Suspect]
     Active Substance: INVESTIGATIONAL PRODUCT
     Indication: Osteochondrodysplasia
     Dosage: 15 MICROGRAM/KILOGRAM, QD
     Route: 058
     Dates: start: 20180716

REACTIONS (1)
  - Spinal cord injury [Not Recovered/Not Resolved]

NARRATIVE: CASE EVENT DATE: 20230622
